FAERS Safety Report 9922436 (Version 2)
Quarter: 2019Q3

REPORT INFORMATION
  Report Type: Spontaneous
  Country: FR (occurrence: FR)
  Receive Date: 20140225
  Receipt Date: 20190718
  Transmission Date: 20191005
  Serious: Yes (Hospitalization, Other)
  Sender: FDA-Public Use
  Company Number: PHHY2014FR022247

PATIENT
  Age: 27 Year
  Sex: Male

DRUGS (4)
  1. PARACETAMOL [Suspect]
     Active Substance: ACETAMINOPHEN
     Indication: HEAD INJURY
     Dosage: 25 G, UNK
     Route: 065
  2. TRAMADOL. [Suspect]
     Active Substance: TRAMADOL
     Indication: CRANIOCEREBRAL INJURY
     Dosage: UNK
     Route: 065
  3. TRAMADOL. [Suspect]
     Active Substance: TRAMADOL
     Indication: HEAD INJURY
  4. PARACETAMOL [Suspect]
     Active Substance: ACETAMINOPHEN
     Indication: CRANIOCEREBRAL INJURY
     Dosage: 2 G, UNK
     Route: 065

REACTIONS (4)
  - Cholestasis [Unknown]
  - Mixed liver injury [Unknown]
  - Hepatic necrosis [Unknown]
  - Drug-induced liver injury [Unknown]
